FAERS Safety Report 8654488 (Version 4)
Quarter: 2013Q1

REPORT INFORMATION
  Report Type: Spontaneous
  Country: ES (occurrence: ES)
  Receive Date: 20120709
  Receipt Date: 20130319
  Transmission Date: 20140127
  Serious: Yes (Hospitalization, Other)
  Sender: FDA-Public Use
  Company Number: ES-PFIZER INC-2012116300

PATIENT
  Age: 33 Year
  Sex: Male
  Weight: 80 kg

DRUGS (6)
  1. TRANKIMAZIN [Suspect]
     Dosage: 1 MG, 3X/DAY
     Dates: start: 201202, end: 201206
  2. TRANKIMAZIN [Suspect]
     Dosage: 0.5 MG, UNK
     Dates: start: 2012
  3. XEPLION [Concomitant]
     Dosage: 75 MG, UNK
  4. RIVOTRIL [Concomitant]
     Dosage: 0.5 MG, UNK
  5. METHADONE [Concomitant]
     Dosage: 50 MG, UNK
  6. EUTIROX [Concomitant]
     Dosage: 200 UG, UNK

REACTIONS (6)
  - Incorrect route of drug administration [Unknown]
  - Drug abuse [Unknown]
  - Suicide attempt [Not Recovered/Not Resolved]
  - Depression [Recovering/Resolving]
  - Drug ineffective [Not Recovered/Not Resolved]
  - Constipation [Recovering/Resolving]
